FAERS Safety Report 7580352-4 (Version None)
Quarter: 2011Q2

REPORT INFORMATION
  Report Type: 
  Country: None (occurrence: None)
  Receive Date: 20110629
  Receipt Date: 20110606
  Transmission Date: 20111010
  Serious: Yes (Other)
  Sender: FDA-Public Use
  Company Number: US-JNJFOC-20110605387

PATIENT
  Age: 71 Year
  Sex: Male

DRUGS (3)
  1. ZYRTEC [Suspect]
     Indication: PRODUCT USED FOR UNKNOWN INDICATION
     Route: 048
  2. ACETAMINOPHEN/DIPHENHYDRAMINE [Interacting]
     Indication: SLEEP DISORDER THERAPY
     Route: 065
  3. ZYRTEC [Suspect]
     Route: 048

REACTIONS (5)
  - WRONG DRUG ADMINISTERED [None]
  - DIPLOPIA [None]
  - ROAD TRAFFIC ACCIDENT [None]
  - DRUG INTERACTION [None]
  - DISORIENTATION [None]
